FAERS Safety Report 13771392 (Version 1)
Quarter: 2017Q3

REPORT INFORMATION
  Report Type: Spontaneous
  Country: BR (occurrence: BR)
  Receive Date: 20170720
  Receipt Date: 20170720
  Transmission Date: 20171127
  Serious: Yes (Other)
  Sender: FDA-Public Use
  Company Number: BR-009507513-1707BRA006831

PATIENT
  Age: 17 Year
  Sex: Female
  Weight: 64 kg

DRUGS (1)
  1. IMPLANON [Suspect]
     Active Substance: ETONOGESTREL
     Indication: MENSTRUAL CYCLE MANAGEMENT
     Dosage: UNKNOWN
     Route: 059
     Dates: start: 20170517

REACTIONS (7)
  - Measles [Recovering/Resolving]
  - Implant site pain [Recovering/Resolving]
  - Menorrhagia [Recovered/Resolved]
  - Implant site discolouration [Recovering/Resolving]
  - Product use in unapproved indication [Unknown]
  - Drug administered to patient of inappropriate age [Unknown]
  - Tonsillitis [Unknown]

NARRATIVE: CASE EVENT DATE: 2017
